FAERS Safety Report 21655097 (Version 1)
Quarter: 2022Q4

REPORT INFORMATION
  Report Type: Report from Study
  Country: PR (occurrence: PR)
  Receive Date: 20221129
  Receipt Date: 20221129
  Transmission Date: 20230112
  Serious: No
  Sender: FDA-Public Use
  Company Number: PR-ABBVIE-4181233

PATIENT
  Sex: Female
  Weight: 59 kg

DRUGS (8)
  1. SKYRIZI [Suspect]
     Active Substance: RISANKIZUMAB-RZAA
     Indication: Psoriatic arthropathy
     Route: 058
     Dates: start: 20220825
  2. SKYRIZI [Suspect]
     Active Substance: RISANKIZUMAB-RZAA
     Indication: Psoriasis
  3. SULFASALAZINE [Concomitant]
     Active Substance: SULFASALAZINE
     Indication: Product used for unknown indication
     Dosage: 500 MILLIGRAM
  4. FOLIC ACID [Concomitant]
     Active Substance: FOLIC ACID
     Indication: Product used for unknown indication
  5. ELASOMERAN [Concomitant]
     Active Substance: ELASOMERAN
     Indication: COVID-19
     Dosage: 1ST DOSE
     Route: 030
     Dates: start: 20210617, end: 20210617
  6. ELASOMERAN [Concomitant]
     Active Substance: ELASOMERAN
     Indication: COVID-19
     Dosage: 2ND DOSE
     Route: 030
     Dates: start: 20210714, end: 20210714
  7. VITAMIN D [Concomitant]
     Active Substance: VITAMIN D NOS
     Indication: Product used for unknown indication
  8. METHOTREXATE [Concomitant]
     Active Substance: METHOTREXATE
     Indication: Product used for unknown indication
     Dosage: 2.5 MILLIGRAM

REACTIONS (2)
  - Dyspnoea [Recovered/Resolved]
  - Blood triglycerides increased [Not Recovered/Not Resolved]

NARRATIVE: CASE EVENT DATE: 20220901
